FAERS Safety Report 5065150-8 (Version None)
Quarter: 2006Q3

REPORT INFORMATION
  Report Type: 
  Country: None (occurrence: None)
  Receive Date: 20060725
  Receipt Date: 20060711
  Transmission Date: 20061208
  Serious: Yes (Congenital Anomaly)
  Sender: FDA-Public Use
  Company Number: 2006-108DP #1

PATIENT
  Sex: Female

DRUGS (1)
  1. VALPROATE SODIUM [Suspect]
     Indication: EPILEPSY
     Dosage: 2000 MG/DAY
     Route: 064

REACTIONS (10)
  - ANTERIOR CHAMBER CLEAVAGE SYNDROME [None]
  - CONGENITAL HAND MALFORMATION [None]
  - CRANIOSYNOSTOSIS [None]
  - DRUG EXPOSURE DURING PREGNANCY [None]
  - DYSMORPHISM [None]
  - FOETAL ANTICONVULSANT SYNDROME [None]
  - LIMB MALFORMATION [None]
  - PLAGIOCEPHALY [None]
  - SKULL MALFORMATION [None]
  - VASCULAR ANOMALY [None]
